FAERS Safety Report 8619357-0 (Version None)
Quarter: 2012Q3

REPORT INFORMATION
  Report Type: 
  Country: None (occurrence: None)
  Receive Date: 20120824
  Receipt Date: 20120815
  Transmission Date: 20120928
  Serious: Yes (Hospitalization, Disabling, Other)
  Sender: FDA-Public Use
  Company Number: US-009507513-1107USA03701

PATIENT

DRUGS (3)
  1. FOSAMAX [Suspect]
     Dosage: 35 MG, QW
     Route: 048
     Dates: start: 20080201, end: 20090220
  2. FOSAMAX [Suspect]
     Indication: OSTEOARTHRITIS
     Dosage: 35 MG, QW
     Route: 048
     Dates: start: 20000101, end: 20081211
  3. FOSAMAX [Suspect]
     Indication: OSTEOPENIA

REACTIONS (127)
  - RENAL FAILURE ACUTE [None]
  - SUICIDAL IDEATION [None]
  - KNEE ARTHROPLASTY [None]
  - DEVICE FAILURE [None]
  - HAEMORRHAGE [None]
  - HALLUCINATION, AUDITORY [None]
  - DENTAL CARIES [None]
  - IMPAIRED HEALING [None]
  - CANDIDIASIS [None]
  - INTERVERTEBRAL DISC PROTRUSION [None]
  - DRY MOUTH [None]
  - TEMPOROMANDIBULAR JOINT SYNDROME [None]
  - PAIN [None]
  - DIZZINESS [None]
  - OEDEMA PERIPHERAL [None]
  - SUICIDE ATTEMPT [None]
  - OSTEOMYELITIS [None]
  - PLEURAL FIBROSIS [None]
  - ESSENTIAL HYPERTENSION [None]
  - SENSITIVITY OF TEETH [None]
  - ORAL FIBROMA [None]
  - ORAL PAIN [None]
  - CHOLELITHIASIS [None]
  - MENISCUS LESION [None]
  - JOINT INJURY [None]
  - DEVICE RELATED INFECTION [None]
  - FRACTURE [None]
  - CATARACT [None]
  - ORAL CANDIDIASIS [None]
  - HYPERLIPIDAEMIA [None]
  - RESTLESS LEGS SYNDROME [None]
  - RIB FRACTURE [None]
  - HEADACHE [None]
  - TOOTH ABSCESS [None]
  - OSTEITIS [None]
  - OSTEOARTHRITIS [None]
  - PNEUMONIA [None]
  - HYPOTHYROIDISM [None]
  - ATELECTASIS [None]
  - MEDICAL DEVICE COMPLICATION [None]
  - TOOTH FRACTURE [None]
  - BRONCHITIS CHRONIC [None]
  - INCREASED TENDENCY TO BRUISE [None]
  - TONGUE GEOGRAPHIC [None]
  - SEASONAL AFFECTIVE DISORDER [None]
  - BLOOD SODIUM DECREASED [None]
  - ROTATOR CUFF SYNDROME [None]
  - SPINAL COLUMN STENOSIS [None]
  - HYPOKALAEMIA [None]
  - ADVERSE EVENT [None]
  - WOUND INFECTION STAPHYLOCOCCAL [None]
  - RHINITIS ALLERGIC [None]
  - ASTHMA [None]
  - GASTROINTESTINAL DISORDER [None]
  - FALL [None]
  - HAEMORRHAGE SUBCUTANEOUS [None]
  - SINUS DISORDER [None]
  - NASOPHARYNGITIS [None]
  - CARDIAC MURMUR [None]
  - ORAL TORUS [None]
  - AMALGAM TATTOO [None]
  - ORAL NEOPLASM BENIGN [None]
  - TONGUE ULCERATION [None]
  - MALAISE [None]
  - PANCYTOPENIA [None]
  - BASAL CELL CARCINOMA [None]
  - OSTEONECROSIS OF JAW [None]
  - MENTAL DISORDER [None]
  - HYPERTRIGLYCERIDAEMIA [None]
  - GLUCOSE TOLERANCE IMPAIRED [None]
  - PEPTIC ULCER [None]
  - COUGH [None]
  - INFECTIOUS MONONUCLEOSIS [None]
  - NERVOUS SYSTEM DISORDER [None]
  - ONYCHOLYSIS [None]
  - TREMOR [None]
  - MITRAL VALVE INCOMPETENCE [None]
  - WEIGHT INCREASED [None]
  - GAIT DISTURBANCE [None]
  - HYPONATRAEMIA [None]
  - URTICARIA [None]
  - DUODENAL ULCER [None]
  - MUSCLE SPASMS [None]
  - CEREBROVASCULAR ACCIDENT [None]
  - DYSPHAGIA [None]
  - GASTRIC DISORDER [None]
  - FISTULA [None]
  - CORONARY ARTERY DISEASE [None]
  - STAPHYLOCOCCAL INFECTION [None]
  - BRUXISM [None]
  - ANGINA PECTORIS [None]
  - ANXIETY [None]
  - SEBORRHOEIC KERATOSIS [None]
  - PERIPHERAL VASCULAR DISORDER [None]
  - HYPOAESTHESIA [None]
  - CARPAL TUNNEL SYNDROME [None]
  - GASTRIC ULCER [None]
  - OFF LABEL USE [None]
  - GASTROOESOPHAGEAL REFLUX DISEASE [None]
  - SQUAMOUS CELL CARCINOMA [None]
  - ANAEMIA [None]
  - INFECTION [None]
  - MOUTH INJURY [None]
  - CHRONIC OBSTRUCTIVE PULMONARY DISEASE [None]
  - PERIODONTITIS [None]
  - POLLAKIURIA [None]
  - MEMORY IMPAIRMENT [None]
  - ARRHYTHMIA [None]
  - SCIATIC NERVE INJURY [None]
  - TRICUSPID VALVE INCOMPETENCE [None]
  - RASH [None]
  - CONVULSION [None]
  - MULTIPLE SCLEROSIS [None]
  - DEPRESSION [None]
  - INTENTIONAL OVERDOSE [None]
  - PERIODONTAL DISEASE [None]
  - ORAL DISORDER [None]
  - ACQUIRED DIAPHRAGMATIC EVENTRATION [None]
  - INTERVERTEBRAL DISC DEGENERATION [None]
  - POSTOPERATIVE FEVER [None]
  - PALPITATIONS [None]
  - DYSPNOEA [None]
  - IRRITABLE BOWEL SYNDROME [None]
  - SWELLING [None]
  - KYPHOSIS [None]
  - CARDIOMEGALY [None]
  - GASTRITIS [None]
